FAERS Safety Report 22179973 (Version 3)
Quarter: 2025Q2

REPORT INFORMATION
  Report Type: Report from Study
  Country: US (occurrence: US)
  Receive Date: 20230406
  Receipt Date: 20250430
  Transmission Date: 20250717
  Serious: Yes (Life-Threatening, Hospitalization, Other)
  Sender: UCB
  Company Number: US-UCBSA-2023003645

PATIENT
  Age: 3 Year
  Sex: Female
  Weight: 13.4 kg

DRUGS (17)
  1. FINTEPLA [Suspect]
     Active Substance: FENFLURAMINE
     Indication: Severe myoclonic epilepsy of infancy
     Dosage: 1.5 MILLILITER, 2X/DAY (BID)
     Route: 048
     Dates: start: 20210401
  2. FINTEPLA [Suspect]
     Active Substance: FENFLURAMINE
     Indication: Severe myoclonic epilepsy of infancy
     Dosage: 3.3 MILLIGRAM, 2X/DAY (BID)
     Route: 048
  3. FINTEPLA [Suspect]
     Active Substance: FENFLURAMINE
     Dosage: 1.5 MILLILITER, 2X/DAY (BID)
  4. FINTEPLA [Suspect]
     Active Substance: FENFLURAMINE
  5. ETHOSUXIMIDE [Suspect]
     Active Substance: ETHOSUXIMIDE
     Indication: Epilepsy
     Dosage: 200 MILLIGRAM, 2X/DAY (BID)
     Route: 048
     Dates: start: 20210317, end: 20230104
  6. ETHOSUXIMIDE [Suspect]
     Active Substance: ETHOSUXIMIDE
  7. ONFI [Concomitant]
     Active Substance: CLOBAZAM
     Indication: Epilepsy
     Dosage: 2.8 MILLILITER, 2X/DAY (BID)
     Route: 048
     Dates: start: 20200320
  8. CALCIUM CARBONATE [Concomitant]
     Active Substance: CALCIUM CARBONATE
     Indication: Product used for unknown indication
     Route: 048
  9. ACETAMINOPHEN [Concomitant]
     Active Substance: ACETAMINOPHEN
     Indication: Pain
     Dosage: 325MG/10.15 ML
     Route: 048
     Dates: start: 20230112
  10. NAPROXEN [Concomitant]
     Active Substance: NAPROXEN
     Indication: Product used for unknown indication
     Dosage: 125MG/ 5ML
     Route: 048
     Dates: start: 20230112
  11. AQUAPHOR BABY [Concomitant]
     Indication: Dry mouth
     Dates: start: 20230112
  12. FAMOTIDINE [Concomitant]
     Active Substance: FAMOTIDINE
     Indication: Product used for unknown indication
     Dosage: 40MG/5 ML(8 MG/ML)
     Route: 048
  13. PREDNISONE [Concomitant]
     Active Substance: PREDNISONE
     Indication: Product used for unknown indication
     Dates: start: 20230112
  14. CANNABIDIOL [Concomitant]
     Active Substance: CANNABIDIOL
     Indication: Product used for unknown indication
     Dosage: 100MG/ML
     Route: 048
     Dates: start: 20220920
  15. FLUTICASONE PROPIONATE [Concomitant]
     Active Substance: FLUTICASONE PROPIONATE
     Indication: Product used for unknown indication
  16. PHENOBARBITAL [Concomitant]
     Active Substance: PHENOBARBITAL
     Indication: Seizure
     Route: 048
  17. TRIAMCINOLONE [Concomitant]
     Active Substance: TRIAMCINOLONE
     Indication: Product used for unknown indication
     Dosage: UNK, 2X/DAY (BID)
     Dates: start: 20221111

REACTIONS (12)
  - Acute kidney injury [Recovered/Resolved]
  - Lupus-like syndrome [Recovered/Resolved]
  - Vomiting [Recovered/Resolved]
  - Gastroenteritis viral [Recovered/Resolved]
  - Gastrointestinal tube insertion [Recovered/Resolved]
  - Seizure [Unknown]
  - Pancytopenia [Unknown]
  - Ingrowing nail [Not Recovered/Not Resolved]
  - Hypocalcaemia [Recovered/Resolved]
  - Dehydration [Unknown]
  - Anaemia [Unknown]
  - Hypophosphataemia [Unknown]

NARRATIVE: CASE EVENT DATE: 20230105
